FAERS Safety Report 7659976-1 (Version None)
Quarter: 2011Q3

REPORT INFORMATION
  Report Type: 
  Country: None (occurrence: None)
  Receive Date: 20110805
  Receipt Date: 20110727
  Transmission Date: 20111222
  Serious: Yes (Hospitalization, Other)
  Sender: FDA-Public Use
  Company Number: BE-ABBOTT-11P-013-0727927-00

PATIENT
  Sex: Female

DRUGS (4)
  1. HUMIRA [Suspect]
     Route: 058
  2. HUMIRA [Suspect]
     Indication: CROHN'S DISEASE
     Route: 058
     Dates: start: 20090724, end: 20090724
  3. IMURAN [Concomitant]
     Indication: CROHN'S DISEASE
     Dates: start: 20081215
  4. HUMIRA [Suspect]
     Route: 058
     Dates: end: 20110412

REACTIONS (1)
  - SMALL INTESTINAL OBSTRUCTION [None]
